FAERS Safety Report 9466782 (Version 2)
Quarter: 2013Q4

REPORT INFORMATION
  Report Type: Spontaneous
  Country: GB (occurrence: GB)
  Receive Date: 20130820
  Receipt Date: 20131021
  Transmission Date: 20140711
  Serious: No
  Sender: FDA-Public Use
  Company Number: GB-TEVA-426399ISR

PATIENT
  Age: 33 Year
  Sex: Female
  Weight: 50.85 kg

DRUGS (1)
  1. COPAXONE [Suspect]
     Dosage: 20 MILLIGRAM DAILY;
     Route: 058
     Dates: start: 20100101

REACTIONS (2)
  - Benign neoplasm of thyroid gland [Recovered/Resolved]
  - Thyroid adenoma [Recovered/Resolved]
